FAERS Safety Report 9296701 (Version 1)
Quarter: 2013Q2

REPORT INFORMATION
  Report Type: Spontaneous
  Country: US (occurrence: None)
  Receive Date: 20130515
  Receipt Date: 20130515
  Transmission Date: 20140414
  Serious: Yes (Hospitalization)
  Sender: FDA-Public Use
  Company Number: UTC-032477

PATIENT
  Age: 67 Year
  Sex: Female
  Weight: 79.55 kg

DRUGS (2)
  1. TYVASCO [Suspect]
     Indication: COR PULMONALE CHRONIC
     Route: 055
     Dates: end: 20120306
  2. SILDENAFIL [Concomitant]

REACTIONS (2)
  - Mental disorder [None]
  - Adverse drug reaction [None]
